FAERS Safety Report 8592109-6 (Version None)
Quarter: 2012Q3

REPORT INFORMATION
  Report Type: 
  Country: None (occurrence: None)
  Receive Date: 20120814
  Receipt Date: 20120807
  Transmission Date: 20120928
  Serious: Yes (Other)
  Sender: FDA-Public Use
  Company Number: JP-VERTEX PHARMACEUTICALS INC.-AE-2012-006756

PATIENT
  Age: 50 Year
  Sex: Male

DRUGS (11)
  1. PEG-INTRON [Concomitant]
     Indication: HEPATITIS C
     Route: 058
     Dates: start: 20120202, end: 20120306
  2. PEG-INTRON [Concomitant]
     Route: 058
     Dates: start: 20120307, end: 20120718
  3. TELAVIC [Suspect]
     Route: 048
     Dates: start: 20120207, end: 20120426
  4. PL COMBINATION GRANULES [Concomitant]
     Route: 048
     Dates: start: 20120711, end: 20120728
  5. MUCODYNE [Concomitant]
     Route: 048
     Dates: start: 20120523, end: 20120610
  6. TELAVIC [Suspect]
     Indication: HEPATITIS C
     Route: 048
     Dates: start: 20120202, end: 20120206
  7. RIBAVIRIN [Concomitant]
     Indication: HEPATITIS C
     Route: 048
     Dates: start: 20120202, end: 20120724
  8. MUCODYNE [Concomitant]
     Route: 048
     Dates: start: 20120711, end: 20120728
  9. LOXONIN [Concomitant]
     Route: 048
     Dates: start: 20120203
  10. PL COMBINATION GRANULES [Concomitant]
     Route: 048
     Dates: start: 20120523, end: 20120610
  11. MUCOSOLVAN [Concomitant]
     Route: 048
     Dates: start: 20120718, end: 20120728

REACTIONS (3)
  - RENAL IMPAIRMENT [None]
  - PANCYTOPENIA [None]
  - RETINAL HAEMORRHAGE [None]
